FAERS Safety Report 17663343 (Version 3)
Quarter: 2020Q2

REPORT INFORMATION
  Report Type: Spontaneous
  Country: CO (occurrence: CO)
  Receive Date: 20200413
  Receipt Date: 20200422
  Transmission Date: 20200713
  Serious: Yes (Other)
  Sender: FDA-Public Use
  Company Number: CO-BIOMARINAP-CO-2020-129612

PATIENT
  Age: 29 Year
  Sex: Female

DRUGS (1)
  1. VIMIZIM [Suspect]
     Active Substance: ELOSULFASE ALFA
     Indication: MUCOPOLYSACCHARIDOSIS IV
     Route: 042

REACTIONS (6)
  - Mobility decreased [Unknown]
  - Spinal cord compression [Unknown]
  - Visual impairment [Unknown]
  - Hypoacusis [Unknown]
  - Carpal tunnel syndrome [Unknown]
  - Sleep apnoea syndrome [Unknown]
